FAERS Safety Report 9161137 (Version 1)
Quarter: 2013Q1

REPORT INFORMATION
  Report Type: Spontaneous
  Country: KR (occurrence: KR)
  Receive Date: 20130313
  Receipt Date: 20130313
  Transmission Date: 20140127
  Serious: Yes (Hospitalization)
  Sender: FDA-Public Use
  Company Number: KR-009507513-1303KOR004029

PATIENT
  Sex: Female

DRUGS (2)
  1. FOSAMAX PLUS D [Suspect]
     Dosage: UNK
     Route: 048
  2. FOSAMAX PLUS D [Suspect]
     Dosage: UNK
     Route: 048

REACTIONS (6)
  - Gastrointestinal disorder [Recovered/Resolved]
  - Myalgia [Recovered/Resolved]
  - Pruritus [Recovered/Resolved]
  - Gastrointestinal disorder [Unknown]
  - Myalgia [Unknown]
  - Pruritus [Unknown]
